FAERS Safety Report 12670728 (Version 2)
Quarter: 2021Q3

REPORT INFORMATION
  Report Type: Spontaneous
  Country: US (occurrence: US)
  Receive Date: 20160822
  Receipt Date: 20210817
  Transmission Date: 20211014
  Serious: No
  Sender: FDA-Public Use
  Company Number: US-JAZZ-2016-US-005926

PATIENT
  Sex: Male

DRUGS (30)
  1. RESTASIS [Concomitant]
     Active Substance: CYCLOSPORINE
  2. CALCIUM + VITAMIN D [CALCIUM;COLECALCIFEROL] [Concomitant]
     Active Substance: CALCIUM\CHOLECALCIFEROL
  3. ADVAIR HFA [Concomitant]
     Active Substance: FLUTICASONE PROPIONATE\SALMETEROL XINAFOATE
  4. ZITHROMAX [Concomitant]
     Active Substance: AZITHROMYCIN DIHYDRATE
  5. XYREM [Suspect]
     Active Substance: SODIUM OXYBATE
     Dosage: DOSE ADJUSTMENTS
     Route: 048
  6. CELEBREX [Concomitant]
     Active Substance: CELECOXIB
  7. FISH OIL CONCENTRATE [Concomitant]
     Active Substance: FISH OIL
  8. TRAMADOL HCL [Concomitant]
     Active Substance: TRAMADOL HYDROCHLORIDE
  9. METHOTREXATE [METHOTREXATE SODIUM] [Concomitant]
     Active Substance: METHOTREXATE SODIUM
  10. PARAFON FORTE [Concomitant]
     Active Substance: CHLORZOXAZONE
  11. XYREM [Suspect]
     Active Substance: SODIUM OXYBATE
     Indication: NARCOLEPSY
     Dosage: 2.25 GRAM, BID
     Route: 048
     Dates: start: 200602, end: 200603
  12. XYREM [Suspect]
     Active Substance: SODIUM OXYBATE
     Dosage: 4.5 GRAM, BID
     Route: 048
     Dates: start: 201201
  13. ACETAMINOPHEN. [Concomitant]
     Active Substance: ACETAMINOPHEN
  14. GABAPENTIN. [Concomitant]
     Active Substance: GABAPENTIN
  15. ENTEX LA [GUAIFENESIN;PHENYLEPHRINE HYDROCHLORIDE] [Concomitant]
     Active Substance: GUAIFENESIN\PHENYLEPHRINE HYDROCHLORIDE
  16. FLONASE [Concomitant]
     Active Substance: FLUTICASONE PROPIONATE
  17. NUVIGIL [Concomitant]
     Active Substance: ARMODAFINIL
  18. CLARITIN [Concomitant]
     Active Substance: LORATADINE
  19. ZYRTEC [Concomitant]
     Active Substance: CETIRIZINE HYDROCHLORIDE
  20. ADVAIR HFA [Concomitant]
     Active Substance: FLUTICASONE PROPIONATE\SALMETEROL XINAFOATE
  21. SKELAXIN [CLONIXIN LYSINATE] [Concomitant]
     Active Substance: CLONIXIN LYSINE
  22. SULFASALAZINE. [Concomitant]
     Active Substance: SULFASALAZINE
  23. GLUCOSAMINE + CHONDROITIN [CHONDROITIN SULFATE;GLUCOSAMINE] [Concomitant]
  24. EMBELINE [Concomitant]
     Active Substance: CLOBETASOL PROPIONATE
  25. BACLOFEN. [Suspect]
     Active Substance: BACLOFEN
     Indication: PRODUCT USED FOR UNKNOWN INDICATION
     Dosage: UNKNOWN DOSE
  26. TIZANIDINE HCL [Suspect]
     Active Substance: TIZANIDINE HYDROCHLORIDE
     Indication: MUSCLE SPASMS
     Dosage: UNK
  27. RANITIDINE [RANITIDINE HYDROCHLORIDE] [Concomitant]
     Active Substance: RANITIDINE
  28. OMEPRAZOLE. [Concomitant]
     Active Substance: OMEPRAZOLE
  29. DARVOCET [DEXTROPROPOXYPHENE NAPSILATE;PARACETAMOL] [Concomitant]
  30. FLOMAX [MORNIFLUMATE] [Concomitant]
     Active Substance: MORNIFLUMATE

REACTIONS (2)
  - Muscle spasms [Unknown]
  - Somnolence [Unknown]
